FAERS Safety Report 16736761 (Version 9)
Quarter: 2020Q4

REPORT INFORMATION
  Report Type: Spontaneous
  Country: CA (occurrence: CA)
  Receive Date: 20190823
  Receipt Date: 20201214
  Transmission Date: 20210113
  Serious: Yes (Hospitalization, Other)
  Sender: FDA-Public Use
  Company Number: CA-009507513-1908CAN008061

PATIENT
  Age: 56 Year
  Sex: Male

DRUGS (61)
  1. MYLAN NITRO [Suspect]
     Active Substance: NITROGLYCERIN
     Indication: PRINZMETAL ANGINA
     Dosage: DOSAGE FORM INHALATION GAS
     Route: 048
  2. BISOPROLOL FUMARATE. [Suspect]
     Active Substance: BISOPROLOL FUMARATE
     Dosage: 1 DOSAGE FORM, 1 EVERY 1 DAYS
     Route: 048
  3. TRIATEC (RAMIPRIL) [Suspect]
     Active Substance: RAMIPRIL
     Dosage: 4 DOSAGE FORM, 1 EVERY 6 HOURS
     Route: 065
  4. CLONAZEPAM. [Suspect]
     Active Substance: CLONAZEPAM
     Dosage: 3 DOSAGE FORM, QD
     Route: 065
  5. NITRO-DUR [Suspect]
     Active Substance: NITROGLYCERIN
     Indication: PRODUCT USED FOR UNKNOWN INDICATION
     Dosage: 1 DOSAGE FORM X 1 EVERY 1 DAYS; DOSAGE FORM: PATCH, EXTENDED RELEASE (ALSO REPORTED AS CUTANEOUS PAT
     Route: 065
  6. AMLODIPINE BESYLATE. [Suspect]
     Active Substance: AMLODIPINE BESYLATE
     Indication: PRODUCT USED FOR UNKNOWN INDICATION
     Dosage: 1.5 TABLET; 1 EVERY 1 DAYS
     Route: 065
  7. CICLOPIROX OLAMINE. [Suspect]
     Active Substance: CICLOPIROX OLAMINE
     Indication: PRODUCT USED FOR UNKNOWN INDICATION
     Dosage: DOSAGE FORM: NOT SPECIFIED
     Route: 065
  8. DELATESTRYL [Suspect]
     Active Substance: TESTOSTERONE ENANTHATE
     Indication: PRODUCT USED FOR UNKNOWN INDICATION
     Dosage: 0.5 ML X 1 PER 2 WEEKS (DOSAGE FORM: SOLUTION INTRAMUSCULAR)
     Route: 065
  9. DILTIAZEM. [Suspect]
     Active Substance: DILTIAZEM
     Dosage: 1 DOSAGE FORM , 1 EVERY 1 DAYS
     Route: 048
  10. EMO-CORT [Suspect]
     Active Substance: HYDROCORTISONE
     Dosage: 1 DOSAGE FORM, 1 EVERY 1 DAYS, DOSAGE FORM: NOT SPECIFIED
     Route: 061
  11. ASPIRIN. [Suspect]
     Active Substance: ASPIRIN
     Dosage: 1 DOSAGE FORM, 1 EVERY 1 DAYS
     Route: 048
  12. ASPIRIN. [Suspect]
     Active Substance: ASPIRIN
     Dosage: 1 DOSAGE FORM, 1 EVERY 1 DAYS
     Route: 048
  13. METONIA [Suspect]
     Active Substance: METOCLOPRAMIDE
     Indication: MIGRAINE
     Dosage: 1 DOSAGE FORM X 3 PER 1 DAYS
     Route: 065
  14. ZOPICLONE [Suspect]
     Active Substance: ZOPICLONE
     Dosage: 1 DOSAGE FORM
     Route: 048
  15. SYNTHROID [Suspect]
     Active Substance: LEVOTHYROXINE SODIUM
     Indication: PRODUCT USED FOR UNKNOWN INDICATION
     Dosage: 1 DOSAGE FORM X 1 EVERY 1 DAYS, DOSAGE FORM: NOT SPECIFIED
     Route: 065
  16. ROSUVASTATIN. [Suspect]
     Active Substance: ROSUVASTATIN
     Indication: PRODUCT USED FOR UNKNOWN INDICATION
     Dosage: 1 DOSAGE FORM, 1 EVERY 1 DAY
     Route: 065
  17. NASONEX [Suspect]
     Active Substance: MOMETASONE FUROATE
     Indication: PRODUCT USED FOR UNKNOWN INDICATION
     Dosage: 1 PER 1 DAYS
     Route: 045
  18. NASONEX [Suspect]
     Active Substance: MOMETASONE FUROATE
     Dosage: 1 DOSAGE FORM, 1 EVERY 1 DAYS, DOSAGE FORM: INTRA-NASAL
     Route: 045
  19. NITRO-DUR [Suspect]
     Active Substance: NITROGLYCERIN
     Indication: PRINZMETAL ANGINA
     Dosage: DOSAGE FORM: NOT SPECIFIED
     Route: 048
  20. TRAZODONE HYDROCHLORIDE. [Suspect]
     Active Substance: TRAZODONE HYDROCHLORIDE
     Indication: PRODUCT USED FOR UNKNOWN INDICATION
     Dosage: 1 DOSAGE FORM, 1 EVERY 1 DAYS
     Route: 065
  21. BRILINTA [Suspect]
     Active Substance: TICAGRELOR
     Dosage: 1 DOSAGE FORM, 1 EVERY 1 DAYS
     Route: 065
  22. DELATESTRYL [Suspect]
     Active Substance: TESTOSTERONE ENANTHATE
     Dosage: 1 DOSAGE FORM, 1 EVERY 2 WEEKS
     Route: 065
  23. METONIA [Suspect]
     Active Substance: METOCLOPRAMIDE
     Dosage: 1 DOSAGE FORM 1 EVERY 8 HOURS
     Route: 048
  24. MYLAN NITRO [Suspect]
     Active Substance: NITROGLYCERIN
     Dosage: 1 DOSAGE FORM
     Route: 048
  25. MYLAN NITRO [Suspect]
     Active Substance: NITROGLYCERIN
     Dosage: 1 DOSAGE FORM, TID
     Route: 065
  26. TRIATEC (RAMIPRIL) [Suspect]
     Active Substance: RAMIPRIL
     Indication: PRODUCT USED FOR UNKNOWN INDICATION
     Dosage: 1 DOSAGE FORM X 4 PER 1 DAYS
     Route: 065
  27. NITRO-DUR [Suspect]
     Active Substance: NITROGLYCERIN
     Dosage: 1 DOSAGE FORM, 1 EVERY 1 DAYS,
     Route: 065
  28. APO ESCITALOPRAM [Suspect]
     Active Substance: ESCITALOPRAM OXALATE
     Indication: PRODUCT USED FOR UNKNOWN INDICATION
     Route: 065
  29. CICLOPIROX OLAMINE. [Suspect]
     Active Substance: CICLOPIROX OLAMINE
     Dosage: 1 DOSAGE FORM
     Route: 065
  30. RIVOTRIL [Suspect]
     Active Substance: CLONAZEPAM
     Dosage: 1 DOSAGE FORM, 3 EVERY 1 DAYS
     Route: 048
  31. DEXILANT [Suspect]
     Active Substance: DEXLANSOPRAZOLE
     Indication: PRODUCT USED FOR UNKNOWN INDICATION
     Dosage: 1 DOSAGE FORM , 1 EVERY 1 DAY
     Route: 065
  32. MYLAN NITRO [Suspect]
     Active Substance: NITROGLYCERIN
     Indication: PRODUCT USED FOR UNKNOWN INDICATION
     Dosage: METERED-DOSE AEROSOL; (OROMUCOSAL SPRAY)
     Route: 048
  33. MYLAN NITRO [Suspect]
     Active Substance: NITROGLYCERIN
     Dosage: 1 DOSAGE FORM
     Route: 048
  34. ROSUVASTATIN CALCIUM. [Suspect]
     Active Substance: ROSUVASTATIN CALCIUM
     Indication: PRODUCT USED FOR UNKNOWN INDICATION
     Dosage: 1 DOSAGE FORM, QD
     Route: 065
  35. TRIATEC (RAMIPRIL) [Suspect]
     Active Substance: RAMIPRIL
     Dosage: 4 DOSAGE FORM, 4 EVERY 1 DAYS
     Route: 065
  36. NASONEX [Suspect]
     Active Substance: MOMETASONE FUROATE
     Dosage: UNK, 1 PER 1 DAYS, DOSAGE FORM: INJECTION
     Route: 045
  37. BRILINTA [Suspect]
     Active Substance: TICAGRELOR
     Indication: PRODUCT USED FOR UNKNOWN INDICATION
     Dosage: 1 DOSAGE FORM, 2 EVERY 1 DAYS
     Route: 065
  38. BRILINTA [Suspect]
     Active Substance: TICAGRELOR
     Dosage: 1 DOSAGE FORM, 2 EVERY 1 DAYS
     Route: 048
  39. RIVOTRIL [Suspect]
     Active Substance: CLONAZEPAM
     Indication: PRODUCT USED FOR UNKNOWN INDICATION
     Dosage: 1 DOSAGE FORM, 3 EVERY 1 DAYS
     Route: 065
  40. RIVOTRIL [Suspect]
     Active Substance: CLONAZEPAM
     Dosage: 3 DOSAGE FORM, 1 EVERY 1 DAYS
     Route: 065
  41. ASPIRIN. [Suspect]
     Active Substance: ASPIRIN
     Indication: PRODUCT USED FOR UNKNOWN INDICATION
     Dosage: 1 DOSAGE FORM, 1 EVERY 1 DAYS
     Route: 065
  42. ZOPICLONE [Suspect]
     Active Substance: ZOPICLONE
     Indication: PRODUCT USED FOR UNKNOWN INDICATION
     Dosage: 1 DOSAGE FORM
     Route: 065
  43. TAMSULOSIN HYDROCHLORIDE. [Suspect]
     Active Substance: TAMSULOSIN HYDROCHLORIDE
     Indication: PRODUCT USED FOR UNKNOWN INDICATION
     Dosage: 1 DOSAGE FORM
     Route: 065
  44. NASONEX [Suspect]
     Active Substance: MOMETASONE FUROATE
     Dosage: UNK, 1 EVERY 24 HOURS, DOSAGE FORM: INJECTION
     Route: 050
  45. TEVA BISOPROLOL [Suspect]
     Active Substance: BISOPROLOL FUMARATE
     Indication: PRODUCT USED FOR UNKNOWN INDICATION
     Dosage: 1 DOSAGE FORM, 1 EVERY 1 DAYS
     Route: 048
  46. TRAZODONE HYDROCHLORIDE. [Suspect]
     Active Substance: TRAZODONE HYDROCHLORIDE
     Dosage: 1 DOSAGE FORM, 1 EVERY 1 DAYS
     Route: 048
  47. RIVOTRIL [Suspect]
     Active Substance: CLONAZEPAM
     Dosage: 3 EVERY 1 DAYS
     Route: 065
  48. TRIATEC (ACETAMINOPHEN (+) CODEINE PHOSPHATE) [Suspect]
     Active Substance: ACETAMINOPHEN\CODEINE PHOSPHATE
     Indication: PRODUCT USED FOR UNKNOWN INDICATION
     Dosage: 4 DOSAGE FORM, QID
     Route: 065
  49. APO ESCITALOPRAM [Suspect]
     Active Substance: ESCITALOPRAM OXALATE
     Dosage: 1 DOSAGE FORM, 1 EVERY 1 DAYS
     Route: 065
  50. APO TAMSULOSIN [Suspect]
     Active Substance: TAMSULOSIN HYDROCHLORIDE
     Indication: PRODUCT USED FOR UNKNOWN INDICATION
     Dosage: 1 DOSAGE FORM, 1 EVERY 1 DAYS
     Route: 065
  51. APO TAMSULOSIN [Suspect]
     Active Substance: TAMSULOSIN HYDROCHLORIDE
     Dosage: 1 DOSAGE FORM, 1 EVERY 1 DAYS
     Route: 048
  52. DELATESTRYL [Suspect]
     Active Substance: TESTOSTERONE ENANTHATE
     Dosage: 0.5 ML X 1 PER 2 WEEKS (DOSAGE FORM: SOLUTION INTRAMUSCULAR)
     Route: 030
  53. DILTIAZEM. [Suspect]
     Active Substance: DILTIAZEM
     Indication: PRODUCT USED FOR UNKNOWN INDICATION
     Dosage: 1 DOSAGE FORM , 1 EVERY 1 DAYS
     Route: 065
  54. EMO-CORT [Suspect]
     Active Substance: HYDROCORTISONE
     Indication: PRODUCT USED FOR UNKNOWN INDICATION
     Dosage: 1 EVERY 1 DAYS
     Route: 061
  55. METONIA [Suspect]
     Active Substance: METOCLOPRAMIDE
     Dosage: 1 DOSAGE FORM X 3 PER 1 DAYS
     Route: 048
  56. BISOPROLOL FUMARATE. [Suspect]
     Active Substance: BISOPROLOL FUMARATE
     Indication: PRODUCT USED FOR UNKNOWN INDICATION
     Dosage: 1 DOSAGE FORM X 1 EVERY 1 DAYS
     Route: 065
  57. BRILINTA [Suspect]
     Active Substance: TICAGRELOR
     Dosage: 2 DOSAGE FORM, QD
     Route: 048
  58. DEXILANT [Suspect]
     Active Substance: DEXLANSOPRAZOLE
     Dosage: 0.5 MILLILITER, 1 EVERY 1 DAY
     Route: 065
  59. DEXILANT [Suspect]
     Active Substance: DEXLANSOPRAZOLE
     Dosage: 1 DOSAGE FORM , 1 EVERY 1 DAY
     Route: 048
  60. METONIA [Suspect]
     Active Substance: METOCLOPRAMIDE
     Dosage: 3 DOSAGE FORM, 1 EVERY 1 DAYS
     Route: 065
  61. CLONAZEPAM. [Suspect]
     Active Substance: CLONAZEPAM
     Indication: PRODUCT USED FOR UNKNOWN INDICATION
     Dosage: 1 DOSAGE FORM, TID
     Route: 065

REACTIONS (3)
  - Device dislocation [Recovered/Resolved]
  - Device malfunction [Recovered/Resolved]
  - Drug ineffective [Recovered/Resolved]
